FAERS Safety Report 15724505 (Version 3)
Quarter: 2019Q1

REPORT INFORMATION
  Report Type: Report from Study
  Country: US (occurrence: US)
  Receive Date: 20181214
  Receipt Date: 20190116
  Transmission Date: 20190417
  Serious: Yes (Life-Threatening, Hospitalization, Other)
  Sender: FDA-Public Use
  Company Number: US-OTSUKA-2018_037863

PATIENT
  Age: 68 Year
  Sex: Female
  Weight: 52.6 kg

DRUGS (4)
  1. TOLVAPTAN [Suspect]
     Active Substance: TOLVAPTAN
     Dosage: 30 MG, QD
     Route: 048
     Dates: start: 20180625, end: 20181130
  2. LOSARTAN. [Concomitant]
     Active Substance: LOSARTAN
     Indication: PRODUCT USED FOR UNKNOWN INDICATION
     Dosage: 50 MG, UNK
     Route: 065
  3. TOLVAPTAN [Suspect]
     Active Substance: TOLVAPTAN
     Indication: CONGENITAL CYSTIC KIDNEY DISEASE
     Dosage: 60 MG, QD
     Route: 048
     Dates: start: 20180625, end: 20181130
  4. CLARITIN [Concomitant]
     Active Substance: LORATADINE
     Indication: PRODUCT USED FOR UNKNOWN INDICATION
     Dosage: 10 MG, AS NEEDED
     Route: 065

REACTIONS (7)
  - Drug-induced liver injury [Recovering/Resolving]
  - Amylase increased [Unknown]
  - Dysgeusia [Unknown]
  - Acute kidney injury [Unknown]
  - Helicobacter infection [Unknown]
  - Lipase increased [Unknown]
  - Depression [Unknown]

NARRATIVE: CASE EVENT DATE: 20181129
